FAERS Safety Report 6099841-7 (Version None)
Quarter: 2009Q1

REPORT INFORMATION
  Report Type: 
  Country: None (occurrence: None)
  Receive Date: 20090303
  Receipt Date: 20090223
  Transmission Date: 20090719
  Serious: Yes (Hospitalization)
  Sender: FDA-Public Use
  Company Number: PHNU2008DE01204

PATIENT
  Sex: Female

DRUGS (2)
  1. EXELON [Suspect]
     Dosage: 4.6 MG/24 HR PATCH
     Route: 062
     Dates: start: 20080219, end: 20080303
  2. CITALOPRAM [Concomitant]
     Dosage: 20 MG/DAY, FOR A LONG TIME
     Route: 048

REACTIONS (2)
  - HEPATITIS [None]
  - PANCREATITIS [None]
